FAERS Safety Report 8806279 (Version 2)
Quarter: 2012Q4

REPORT INFORMATION
  Report Type: 
  Country: US (occurrence: US)
  Receive Date: 20120925
  Receipt Date: 20121004
  Transmission Date: 20130627
  Serious: Yes (Hospitalization)
  Sender: FDA-Public Use
  Company Number: US-BAYER-2012-097663

PATIENT
  Age: 31 Year
  Sex: Female

DRUGS (5)
  1. YAZ [Suspect]
     Dosage: UNK
     Dates: start: 2006, end: 201105
  2. OCELLA [Suspect]
     Dosage: UNK
     Dates: start: 2006, end: 201105
  3. SYNTHROID [Concomitant]
  4. REMERON [Concomitant]
  5. ECASA [Concomitant]

REACTIONS (2)
  - Injury [None]
  - Transient ischaemic attack [None]
